FAERS Safety Report 5217562-7 (Version None)
Quarter: 2007Q1

REPORT INFORMATION
  Report Type: 
  Country: None (occurrence: None)
  Receive Date: 20070124
  Receipt Date: 20060324
  Transmission Date: 20070707
  Serious: No
  Sender: FDA-Public Use
  Company Number: US-GLAXOSMITHKLINE-A0599785A

PATIENT
  Age: 68 Year
  Sex: Female

DRUGS (1)
  1. PAXIL CR [Suspect]
     Indication: DRUG USE FOR UNKNOWN INDICATION
     Route: 048

REACTIONS (5)
  - ANXIETY [None]
  - CRYING [None]
  - FEAR [None]
  - MOOD SWINGS [None]
  - THERAPEUTIC RESPONSE DECREASED [None]
